FAERS Safety Report 8399429-9 (Version None)
Quarter: 2012Q2

REPORT INFORMATION
  Report Type: 
  Country: None (occurrence: None)
  Receive Date: 20120531
  Receipt Date: 20120416
  Transmission Date: 20120825
  Serious: Yes (Other)
  Sender: FDA-Public Use
  Company Number: PHHY2012VE034162

PATIENT
  Sex: Female

DRUGS (7)
  1. SANDOSTATIN LAR [Suspect]
     Dosage: 30 MG, MONTHLY
     Dates: start: 20120412
  2. LANSOPRAZOLE [Concomitant]
     Dosage: 30 MG, BID
     Dates: start: 20120101
  3. FERROUS GLYCINE SULFATE [Concomitant]
     Route: 048
     Dates: start: 20120301
  4. SANDOSTATIN LAR [Suspect]
     Indication: NEUROENDOCRINE TUMOUR
     Dosage: 30 MG, MONTHLY
     Dates: start: 20120312
  5. LEVOTHYROXINE SODIUM [Concomitant]
     Indication: HYPOTHYROIDISM
     Dosage: 25 MG, UNK
     Dates: start: 20120101
  6. VITAMINS NOS [Concomitant]
  7. PANKREON [Concomitant]
     Dates: start: 20091201

REACTIONS (2)
  - INJECTION SITE DISCOMFORT [None]
  - INJECTION SITE ABSCESS [None]
